FAERS Safety Report 22217840 (Version 1)
Quarter: 2023Q2

REPORT INFORMATION
  Report Type: Spontaneous
  Country: JP (occurrence: JP)
  Receive Date: 20230417
  Receipt Date: 20230417
  Transmission Date: 20230721
  Serious: Yes (Other)
  Sender: FDA-Public Use
  Company Number: JP-CHUGAI-2023013525

PATIENT
  Age: 6 Decade
  Sex: Female

DRUGS (1)
  1. AVASTIN [Suspect]
     Active Substance: BEVACIZUMAB
     Indication: Cervix carcinoma
     Dosage: UNK
     Route: 041

REACTIONS (2)
  - Metastases to lung [Unknown]
  - Metastases to lymph nodes [Unknown]
